FAERS Safety Report 6717593-1 (Version None)
Quarter: 2010Q2

REPORT INFORMATION
  Report Type: 
  Country: None (occurrence: None)
  Receive Date: 20100507
  Receipt Date: 20100507
  Transmission Date: 20101027
  Serious: Yes (Life-Threatening, Hospitalization, Other)
  Sender: FDA-Public Use
  Company Number: None

PATIENT
  Age: 70 Year
  Sex: Male
  Weight: 79.3795 kg

DRUGS (1)
  1. HEPARIN [Suspect]
     Indication: THROMBOSIS PROPHYLAXIS
     Dosage: INJECT 1 ML THREE TIME DAILY INTRAPERITONEAL
     Route: 033
     Dates: start: 20100421, end: 20100423

REACTIONS (5)
  - DRUG INEFFECTIVE [None]
  - GANGRENE [None]
  - LEG AMPUTATION [None]
  - SEPSIS [None]
  - THROMBOSIS [None]
